FAERS Safety Report 4965601-0 (Version None)
Quarter: 2006Q1

REPORT INFORMATION
  Report Type: 
  Country: None (occurrence: None)
  Receive Date: 20060201
  Receipt Date: 20051007
  Transmission Date: 20060701
  Serious: No
  Sender: FDA-Public Use
  Company Number: 2005PV003210

PATIENT
  Age: 68 Year
  Sex: Female
  Weight: 103.4201 kg

DRUGS (4)
  1. BYETTA [Suspect]
     Indication: DIABETES MELLITUS NON-INSULIN-DEPENDENT
     Dosage: SEE IMAGE
     Route: 058
     Dates: start: 20050101, end: 20050101
  2. BYETTA [Suspect]
     Indication: DIABETES MELLITUS NON-INSULIN-DEPENDENT
     Dosage: SEE IMAGE
     Route: 058
     Dates: start: 20050926, end: 20050101
  3. ACTOS [Concomitant]
  4. ZITHROMAX [Concomitant]

REACTIONS (5)
  - BLOOD GLUCOSE DECREASED [None]
  - COUGH [None]
  - HYPERHIDROSIS [None]
  - NASOPHARYNGITIS [None]
  - NERVOUSNESS [None]
